FAERS Safety Report 20713725 (Version 1)
Quarter: 2022Q2

REPORT INFORMATION
  Report Type: Report from Study
  Country: US (occurrence: US)
  Receive Date: 20220415
  Receipt Date: 20220415
  Transmission Date: 20220721
  Serious: Yes (Hospitalization)
  Sender: FDA-Public Use
  Company Number: US-INTERCEPT-CT2022000615

PATIENT
  Age: 47 Year
  Sex: Male
  Weight: 98 kg

DRUGS (6)
  1. OBETICHOLIC ACID [Suspect]
     Active Substance: OBETICHOLIC ACID
     Indication: Non-alcoholic steatohepatitis
     Dosage: 10 MILLIGRAM, QD
     Route: 048
     Dates: start: 20210628
  2. ATORVASTATIN [Concomitant]
     Active Substance: ATORVASTATIN
     Indication: Hyperlipidaemia
     Dosage: 20 MILLIGRAM, QD
     Route: 048
     Dates: start: 2008
  3. ALBUTEROL [Concomitant]
     Active Substance: ALBUTEROL
     Indication: Rhinitis
     Dosage: 90 MICROGRAM, PRN
     Route: 055
     Dates: start: 20200205
  4. MORPHINE [Concomitant]
     Active Substance: MORPHINE
     Indication: Biliary colic
     Dosage: 4 MILLIGRAM, SINGLE
     Route: 042
     Dates: start: 20220307, end: 20220307
  5. LOSARTAN [Concomitant]
     Active Substance: LOSARTAN
     Indication: Hypertension
     Dosage: 50 MILLIGRAM, BID
     Route: 048
     Dates: start: 20210730
  6. AMLODIPINE [Concomitant]
     Active Substance: AMLODIPINE BESYLATE
     Indication: Hypertension
     Dosage: 10 MILLIGRAM, QD
     Dates: start: 20210903

REACTIONS (1)
  - Cholecystitis acute [Recovering/Resolving]

NARRATIVE: CASE EVENT DATE: 20220319
